FAERS Safety Report 5363782-0 (Version None)
Quarter: 2007Q2

REPORT INFORMATION
  Report Type: 
  Country: None (occurrence: None)
  Receive Date: 20070620
  Receipt Date: 20070614
  Transmission Date: 20071010
  Serious: Yes (Hospitalization, Other)
  Sender: FDA-Public Use
  Company Number: HQWYE620214JUN07

PATIENT
  Age: 83 Year
  Sex: Female

DRUGS (14)
  1. CORDARONE [Suspect]
     Indication: ATRIAL FIBRILLATION
     Dosage: 200 MG, FREQUENCY UNSPECIFIED
     Route: 048
     Dates: end: 20070101
  2. CORDARONE [Suspect]
     Indication: ATRIAL FLUTTER
  3. RAMIPRIL [Concomitant]
     Indication: HYPERTENSIVE HEART DISEASE
     Route: 048
     Dates: end: 20070101
  4. RAMIPRIL [Concomitant]
     Route: 048
     Dates: start: 20070101
  5. ASPIRIN [Concomitant]
     Route: 048
     Dates: end: 20070116
  6. KALEORID [Concomitant]
     Route: 048
     Dates: end: 20070116
  7. BISOPROLOL FUMARATE [Concomitant]
     Dosage: DOSE UNKNOWN
     Route: 065
     Dates: end: 20070101
  8. TRIVASTAL [Concomitant]
     Dosage: DOSE UNKNOWN
     Route: 048
  9. SULFARLEM [Concomitant]
     Dosage: DOSE UNKNOWN
     Route: 065
  10. PAROXETINE [Concomitant]
     Dosage: DOSE UNKNOWN
     Route: 048
  11. MOGADON [Concomitant]
     Dosage: DOSE UNKNOWN
     Route: 065
  12. SPASFON [Concomitant]
     Dosage: DOSE UNKNOWN
     Route: 065
  13. LASIX [Concomitant]
     Indication: HYPERTENSIVE HEART DISEASE
     Route: 048
     Dates: end: 20070116
  14. ISOSORBIDE MONONITRATE [Concomitant]
     Dosage: DOSE UNKNOWN
     Route: 048

REACTIONS (2)
  - FALL [None]
  - HYPERTHYROIDISM [None]
